FAERS Safety Report 5400633-X (Version None)
Quarter: 2007Q3

REPORT INFORMATION
  Report Type: 
  Country: None (occurrence: None)
  Receive Date: 20070730
  Receipt Date: 20070725
  Transmission Date: 20080115
  Serious: Yes (Disabling)
  Sender: FDA-Public Use
  Company Number: DE-BRISTOL-MYERS SQUIBB COMPANY-13859590

PATIENT
  Age: 82 Year
  Sex: Female

DRUGS (1)
  1. ERBITUX [Suspect]
     Indication: RECTOSIGMOID CANCER
     Dosage: 7 SEPERATE DOSE - 250MG
     Route: 042
     Dates: start: 20070514, end: 20070514

REACTIONS (1)
  - DEEP VEIN THROMBOSIS [None]
